FAERS Safety Report 6271774 (Version 24)
Quarter: 2014Q1

REPORT INFORMATION
  Report Type: Spontaneous
  Country: US (occurrence: US)
  Receive Date: 20070327
  Receipt Date: 20140106
  Transmission Date: 20141002
  Serious: Yes (Death, Hospitalization, Disabling, Other)
  Sender: FDA-Public Use
  Company Number: PHEH2007US03273

PATIENT
  Age: 79 Year
  Sex: Male
  Weight: 116.55 kg

DRUGS (65)
  1. ZOMETA [Suspect]
     Indication: METASTASES TO BONE
     Dosage: 4 MG, QMO
     Route: 042
     Dates: start: 200309, end: 200412
  2. ZOMETA [Suspect]
     Indication: PROSTATE CANCER
  3. TOPROL XL [Concomitant]
  4. BENICAR [Concomitant]
  5. LUPRON [Concomitant]
     Dates: start: 20030218
  6. CLINDAMYCIN [Concomitant]
  7. VICOPROFEN [Concomitant]
  8. CASODEX [Concomitant]
     Dates: start: 20030218
  9. REMERON [Concomitant]
  10. EFFEXOR [Concomitant]
  11. HALDOL [Concomitant]
     Dates: start: 200801
  12. PHENOBARBITAL [Concomitant]
     Dates: start: 200801
  13. LIDOCAINE [Concomitant]
     Dates: start: 200801
  14. MS CONTIN [Concomitant]
  15. LIDODERM [Concomitant]
     Dates: start: 200801
  16. ALBUTEROL [Concomitant]
  17. FUROSEMIDE [Concomitant]
  18. ELAVIL [Concomitant]
  19. GABAPENTIN [Concomitant]
  20. RESTORIL [Concomitant]
  21. PERIDEX [Concomitant]
  22. OXYGEN [Concomitant]
  23. DECADRON                                /NET/ [Concomitant]
  24. ELIGARD [Concomitant]
     Dosage: 30 MG, UNK
  25. BIAXIN [Concomitant]
  26. ZAROXOLYN [Concomitant]
  27. XYLOCAINE [Concomitant]
  28. SENOKOT                                 /USA/ [Concomitant]
  29. LACTULOSE [Concomitant]
  30. DULCOLAX [Concomitant]
  31. POTASSIUM CHLORIDE [Concomitant]
  32. PERIOGARD [Concomitant]
  33. ROBITUSSIN ^ROBINS^ [Concomitant]
  34. KLOR-CON [Concomitant]
  35. DEXAMETHASONE [Concomitant]
  36. BACTERIOSTATIC SODIUM CHLORIDE INJECTION [Concomitant]
  37. ROBINUL [Concomitant]
  38. ENULOSE [Concomitant]
  39. ULTRAM [Concomitant]
  40. CIPRO ^MILES^ [Concomitant]
  41. ALDACTONE [Concomitant]
  42. MYLANTA                                 /USA/ [Concomitant]
  43. NYSTATIN [Concomitant]
  44. AMANTADINE [Concomitant]
  45. AMITRIPTYLINE [Concomitant]
  46. RITALIN [Concomitant]
  47. ANTIVERT ^PFIZER^ [Concomitant]
  48. COMPAZINE [Concomitant]
  49. PERCOCET [Concomitant]
  50. NSAID^S [Concomitant]
  51. ZOFRAN [Concomitant]
     Route: 042
  52. DECADRAN [Concomitant]
     Dosage: 10 MG, UNK
     Route: 042
  53. NEURONTIN [Concomitant]
     Dosage: 300 MG, UNK
     Route: 048
  54. SOLU-MEDROL [Concomitant]
     Dosage: 40 MG, UNK
  55. PROTONIX [Concomitant]
     Dosage: 40 MG, UNK
     Route: 048
  56. VALIUM [Concomitant]
     Dosage: 5 MG, UNK
     Route: 048
  57. PHENERGAN [Concomitant]
     Dosage: 25 MG, UNK
  58. ACIPHEX [Concomitant]
     Dosage: 20 MG, UNK
  59. REGLAN                                  /USA/ [Concomitant]
  60. PREVACID [Concomitant]
  61. ZYMAR [Concomitant]
  62. HYDROCHLOROTHIAZIDE [Concomitant]
     Dosage: 30 MG, DAILY
  63. MIDAZOLAM [Concomitant]
     Dosage: 1 MG, PRN
     Route: 042
  64. ADRENALINE [Concomitant]
  65. CLEOMYCIN [Concomitant]

REACTIONS (105)
  - Prostate cancer [Fatal]
  - Prostatic specific antigen increased [Fatal]
  - Metastases to bone [Unknown]
  - Weight decreased [Fatal]
  - Bone lesion [Unknown]
  - Metastases to spine [Unknown]
  - Respiratory distress [Unknown]
  - Generalised oedema [Unknown]
  - Pulmonary congestion [Unknown]
  - Restlessness [Unknown]
  - Lethargy [Unknown]
  - Agitation [Unknown]
  - Osteonecrosis of jaw [Unknown]
  - Pain in jaw [Unknown]
  - Toothache [Unknown]
  - Bone disorder [Unknown]
  - Primary sequestrum [Unknown]
  - Tongue ulceration [Unknown]
  - Oral mucosal erythema [Unknown]
  - Gingival inflammation [Unknown]
  - Periodontal disease [Unknown]
  - Glossodynia [Recovered/Resolved]
  - Tongue injury [Unknown]
  - Impaired healing [Unknown]
  - General physical health deterioration [Unknown]
  - Pain [Unknown]
  - Osteitis [Unknown]
  - Anxiety [Unknown]
  - Decreased interest [Unknown]
  - Neck pain [Unknown]
  - Asthenia [Unknown]
  - Hypoaesthesia [Unknown]
  - Osteoarthritis [Unknown]
  - Basal cell carcinoma [Unknown]
  - Squamous cell carcinoma [Unknown]
  - Lumbar spinal stenosis [Unknown]
  - Vomiting [Unknown]
  - Nausea [Unknown]
  - Hiatus hernia [Unknown]
  - Syncope [Unknown]
  - Hypertension [Unknown]
  - Constipation [Unknown]
  - Rectal haemorrhage [Unknown]
  - Fatigue [Unknown]
  - Skin cancer [Unknown]
  - Arthralgia [Unknown]
  - Back pain [Unknown]
  - Arthritis [Unknown]
  - Deafness [Unknown]
  - Dyspnoea [Unknown]
  - Incontinence [Unknown]
  - Hypotension [Unknown]
  - Oesophagitis [Unknown]
  - Blood pressure fluctuation [Unknown]
  - Cataract [Unknown]
  - Hearing impaired [Unknown]
  - Lacunar infarction [Unknown]
  - Lung carcinoma cell type unspecified stage 0 [Unknown]
  - Headache [Unknown]
  - Vertigo [Unknown]
  - Depressed mood [Unknown]
  - Insomnia [Unknown]
  - Neuropathy peripheral [Unknown]
  - Fall [Unknown]
  - Balance disorder [Unknown]
  - Oedema peripheral [Unknown]
  - Confusional state [Unknown]
  - Muscular weakness [Unknown]
  - Urinary tract infection [Unknown]
  - Klebsiella test positive [Unknown]
  - Blood urea increased [Unknown]
  - Blood glucose decreased [Unknown]
  - Alanine aminotransferase decreased [Unknown]
  - Haemoglobin decreased [Unknown]
  - Intervertebral disc protrusion [Unknown]
  - Atrioventricular block first degree [Unknown]
  - Breast tenderness [Unknown]
  - Carotid arteriosclerosis [Unknown]
  - Hepatic cyst [Unknown]
  - Renal cyst [Unknown]
  - Dysphagia [Unknown]
  - Laceration [Unknown]
  - Gait disturbance [Unknown]
  - Dizziness [Unknown]
  - Trigger finger [Unknown]
  - Bone pain [Unknown]
  - Blood albumin decreased [Unknown]
  - Spondylolisthesis [Unknown]
  - Vertebral osteophyte [Unknown]
  - Dehydration [Unknown]
  - Gastritis [Unknown]
  - Acquired oesophageal web [Unknown]
  - Drug hypersensitivity [Unknown]
  - Neuralgia [Unknown]
  - Metastases to lung [Recovering/Resolving]
  - Meniere^s disease [Unknown]
  - Astigmatism [Unknown]
  - Depression [Unknown]
  - Tooth loss [Unknown]
  - Exposed bone in jaw [Unknown]
  - Osteomyelitis [Unknown]
  - Osteolysis [Unknown]
  - Osteosclerosis [Unknown]
  - Peptic ulcer [Unknown]
  - Intervertebral disc degeneration [Unknown]
